FAERS Safety Report 8192347-0 (Version None)
Quarter: 2012Q1

REPORT INFORMATION
  Report Type: 
  Country: None (occurrence: None)
  Receive Date: 20120308
  Receipt Date: 20120227
  Transmission Date: 20120608
  Serious: Yes (Other)
  Sender: FDA-Public Use
  Company Number: US-ASTRAZENECA-2011SE34619

PATIENT
  Age: 28 Year
  Sex: Male
  Weight: 59.9 kg

DRUGS (12)
  1. KLONOPIN [Concomitant]
     Route: 048
  2. MORPHINE SULFATE [Concomitant]
     Route: 048
  3. SYNTHROID [Concomitant]
     Route: 048
  4. MORPHINE SULFATE [Concomitant]
     Route: 048
  5. CITALOPRAM HYDROBROMIDE [Concomitant]
     Route: 048
  6. ROXICODONE [Concomitant]
     Route: 048
  7. PHENERGAN [Concomitant]
     Dosage: AT NIGHT
  8. KLONOPIN [Concomitant]
     Route: 048
  9. VANDETANIB [Suspect]
     Route: 048
     Dates: start: 20110523
  10. MORPHINE SULFATE [Concomitant]
     Route: 048
  11. LOMOTIL [Concomitant]
     Dosage: DAILY
     Route: 048
  12. VANDETANIB [Suspect]
     Indication: THYROID CANCER
     Route: 048
     Dates: start: 20110523

REACTIONS (4)
  - MUSCULAR WEAKNESS [None]
  - REGURGITATION [None]
  - CONVULSION [None]
  - NAUSEA [None]
